FAERS Safety Report 9751616 (Version 2)
Quarter: 2013Q4

REPORT INFORMATION
  Report Type: Spontaneous
  Country: CA (occurrence: CA)
  Receive Date: 20131212
  Receipt Date: 20131212
  Transmission Date: 20140711
  Serious: Yes (Hospitalization, Other)
  Sender: FDA-Public Use
  Company Number: CA-AMGEN-CANSP2013023051

PATIENT
  Age: 59 Year
  Sex: Female

DRUGS (21)
  1. ENBREL [Suspect]
     Indication: RHEUMATOID ARTHRITIS
     Dosage: 50 MG, QWK
     Route: 058
  2. MTX /00113801/ [Suspect]
     Indication: RHEUMATOID ARTHRITIS
     Dosage: 25 MG, QWK
     Route: 048
     Dates: start: 2000, end: 20130222
  3. ARAVA [Suspect]
     Indication: RHEUMATOID ARTHRITIS
     Dosage: 20 MG, QD
     Route: 048
     Dates: start: 2005, end: 20130222
  4. ANCEF                              /00288502/ [Concomitant]
     Dosage: UNK
  5. VITAMIN C                          /00008001/ [Concomitant]
     Dosage: UNK
  6. CALCIUM [Concomitant]
     Dosage: UNK
  7. DILAUDID [Concomitant]
     Dosage: UNK
  8. ENOXAPARIN [Concomitant]
     Dosage: UNK
  9. VITAMIN D                          /00107901/ [Concomitant]
     Dosage: UNK
  10. CYANOCOBALAMIN [Concomitant]
     Dosage: UNK
  11. FINACEA [Concomitant]
     Dosage: UNK
  12. HYDROMORPH CONTIN [Concomitant]
     Dosage: UNK
  13. LACTOBACILLUS RHAMNOSUS [Concomitant]
     Dosage: UNK
  14. MULTIVITAMINS, PLAIN [Concomitant]
     Dosage: UNK
  15. POTASSIUM CHLORIDE [Concomitant]
     Dosage: UNK
  16. VANCOMYCIN [Concomitant]
     Dosage: UNK
  17. VENTOLIN                           /00139501/ [Concomitant]
     Dosage: UNK
  18. VITAMIN B 12 [Concomitant]
     Dosage: UNK
  19. FOLIC ACID [Concomitant]
     Dosage: UNK
  20. ACNES [Concomitant]
     Dosage: UNK
  21. VALSARTAN [Concomitant]
     Dosage: UNK

REACTIONS (16)
  - Condition aggravated [Recovering/Resolving]
  - Decreased appetite [Not Recovered/Not Resolved]
  - Nausea [Not Recovered/Not Resolved]
  - Pain [Not Recovered/Not Resolved]
  - Swelling [Not Recovered/Not Resolved]
  - Musculoskeletal stiffness [Not Recovered/Not Resolved]
  - Arthralgia [Not Recovered/Not Resolved]
  - Blood pressure increased [Not Recovered/Not Resolved]
  - Breath sounds abnormal [Not Recovered/Not Resolved]
  - Joint swelling [Not Recovered/Not Resolved]
  - Pyrexia [Not Recovered/Not Resolved]
  - Sepsis [Not Recovered/Not Resolved]
  - Localised infection [Not Recovered/Not Resolved]
  - Clostridium difficile colitis [Not Recovered/Not Resolved]
  - Bacteraemia [Not Recovered/Not Resolved]
  - Abscess limb [Not Recovered/Not Resolved]
